FAERS Safety Report 15136151 (Version 1)
Quarter: 2018Q3

REPORT INFORMATION
  Report Type: Spontaneous
  Country: US (occurrence: US)
  Receive Date: 20180617
  Receipt Date: 20180617
  Transmission Date: 20181010
  Serious: Yes (Disabling)
  Sender: FDA-Public Use
  Company Number: None

PATIENT
  Age: 64 Year
  Sex: Female
  Weight: 86.4 kg

DRUGS (8)
  1. WELLBUTRIN [Concomitant]
     Active Substance: BUPROPION HYDROCHLORIDE
  2. KLONOPIN [Concomitant]
     Active Substance: CLONAZEPAM
  3. LIPITOR [Concomitant]
     Active Substance: ATORVASTATIN CALCIUM
  4. CLONAZEPAM 0.5MG TABLET GENERIC FOR KLONOPIN. [Suspect]
     Active Substance: CLONAZEPAM
     Indication: ANXIETY
     Dosage: ?          QUANTITY:3 TABLET(S);?
     Route: 048
     Dates: start: 20180604, end: 20180614
  5. ZOLOFT [Concomitant]
     Active Substance: SERTRALINE HYDROCHLORIDE
  6. OMEPRAZOLE. [Concomitant]
     Active Substance: OMEPRAZOLE
  7. CELEBREX [Concomitant]
     Active Substance: CELECOXIB
  8. CLONAZEPAM 0.5MG TABLET GENERIC FOR KLONOPIN. [Suspect]
     Active Substance: CLONAZEPAM
     Indication: DEPRESSION
     Dosage: ?          QUANTITY:3 TABLET(S);?
     Route: 048
     Dates: start: 20180604, end: 20180614

REACTIONS (8)
  - Pain in jaw [None]
  - Drug withdrawal syndrome [None]
  - Crying [None]
  - Headache [None]
  - Neck pain [None]
  - Negative thoughts [None]
  - Self-injurious ideation [None]
  - Product substitution issue [None]

NARRATIVE: CASE EVENT DATE: 20180613
